FAERS Safety Report 4469162-4 (Version None)
Quarter: 2004Q4

REPORT INFORMATION
  Report Type: 
  Country: None (occurrence: None)
  Receive Date: 20041005
  Receipt Date: 20040907
  Transmission Date: 20050328
  Serious: Yes (Other)
  Sender: FDA-Public Use
  Company Number: M2004-1378

PATIENT
  Age: 73 Year
  Sex: Male

DRUGS (1)
  1. ATENOLOL [Suspect]
     Indication: ARRHYTHMIA
     Dosage: 50MG DAILY
     Dates: start: 20020601

REACTIONS (2)
  - LOSS OF PROPRIOCEPTION [None]
  - MUSCULAR WEAKNESS [None]
